FAERS Safety Report 23349958 (Version 1)
Quarter: 2023Q4

REPORT INFORMATION
  Report Type: Spontaneous
  Country: US (occurrence: US)
  Receive Date: 20231229
  Receipt Date: 20231229
  Transmission Date: 20240110
  Serious: Yes (Other)
  Sender: FDA-Public Use
  Company Number: US-TEVA-VS-3138558

PATIENT
  Age: 45 Year

DRUGS (8)
  1. SIMVASTATIN [Suspect]
     Active Substance: SIMVASTATIN
     Indication: Hypercholesterolaemia
     Route: 065
  2. EVOLOCUMAB [Interacting]
     Active Substance: EVOLOCUMAB
     Indication: Hypercholesterolaemia
     Route: 058
  3. MITOTANE [Interacting]
     Active Substance: MITOTANE
     Indication: Adrenocortical carcinoma
     Dosage: DOSAGE WAS INCREASED
     Route: 065
  4. MITOTANE [Interacting]
     Active Substance: MITOTANE
     Indication: Adrenocortical carcinoma
     Dosage: ADJUVANT THERAPY
     Route: 065
  5. HYDROCORTISONE [Concomitant]
     Active Substance: HYDROCORTISONE
     Indication: Hormone replacement therapy
     Route: 048
  6. ROSUVASTATIN [Concomitant]
     Active Substance: ROSUVASTATIN
     Indication: Hypercholesterolaemia
     Route: 065
  7. ROSUVASTATIN [Concomitant]
     Active Substance: ROSUVASTATIN
     Indication: Hypercholesterolaemia
     Route: 065
  8. EZETIMIBE [Concomitant]
     Active Substance: EZETIMIBE
     Indication: Hypercholesterolaemia
     Route: 065

REACTIONS (4)
  - Hypercholesterolaemia [Recovered/Resolved]
  - Therapeutic product effect decreased [Unknown]
  - Off label use [Unknown]
  - Drug interaction [Unknown]
